FAERS Safety Report 14930901 (Version 4)
Quarter: 2018Q3

REPORT INFORMATION
  Report Type: Spontaneous
  Country: US (occurrence: US)
  Receive Date: 20180524
  Receipt Date: 20180905
  Transmission Date: 20181010
  Serious: Yes (Other)
  Sender: FDA-Public Use
  Company Number: US-AMGEN-USASP2018069634

PATIENT
  Age: 64 Year
  Sex: Female
  Weight: 75.28 kg

DRUGS (11)
  1. XELJANZ XR [Suspect]
     Active Substance: TOFACITINIB CITRATE
     Indication: PRODUCT USED FOR UNKNOWN INDICATION
     Dosage: 11 MG, QD
     Route: 048
     Dates: start: 201803
  2. DIOVAN [Concomitant]
     Active Substance: VALSARTAN
     Indication: HYPERTENSION
     Dosage: UNK
  3. ENBREL [Suspect]
     Active Substance: ETANERCEPT
     Dosage: 25 MG, 2 TIMES/WK
     Route: 058
  4. TRAMADOL. [Concomitant]
     Active Substance: TRAMADOL
     Dosage: 50 MILLIGRAMS TWO TABLETS TWICE DAILY OR OCCASIONALLY THREE TIMES A DAY
  5. ENBREL [Suspect]
     Active Substance: ETANERCEPT
     Indication: RHEUMATOID ARTHRITIS
     Dosage: 50 MG, UNK
     Route: 065
  6. METHOTREXATE. [Concomitant]
     Active Substance: METHOTREXATE
     Dosage: 20 MG, UNK
  7. PLAQUENIL [Concomitant]
     Active Substance: HYDROXYCHLOROQUINE SULFATE
     Dosage: 200 MG, BID
  8. NAPRELAN [Concomitant]
     Active Substance: NAPROXEN SODIUM
     Dosage: 375 MG, BID
  9. METHOTREXATE. [Concomitant]
     Active Substance: METHOTREXATE
     Dosage: 2.5 MG, UNK
  10. MINOCYCLINE [Concomitant]
     Active Substance: MINOCYCLINE\MINOCYCLINE HYDROCHLORIDE
     Dosage: 100 MG, BID
  11. ENBREL [Suspect]
     Active Substance: ETANERCEPT
     Dosage: 50 MG, QWK
     Route: 065
     Dates: start: 2018

REACTIONS (20)
  - Gait disturbance [Unknown]
  - Rash erythematous [Not Recovered/Not Resolved]
  - Oral herpes [Unknown]
  - Musculoskeletal pain [Unknown]
  - Anaemia [Not Recovered/Not Resolved]
  - Low density lipoprotein increased [Unknown]
  - Osteoarthritis [Unknown]
  - Rheumatoid arthritis [Unknown]
  - Drug ineffective [Unknown]
  - Back pain [Unknown]
  - Dry eye [Unknown]
  - Hypersensitivity [Unknown]
  - Hyperlipidaemia [Not Recovered/Not Resolved]
  - Mobility decreased [Unknown]
  - Asthma [Unknown]
  - Arthralgia [Unknown]
  - Joint range of motion decreased [Unknown]
  - Osteopenia [Unknown]
  - Asthenia [Unknown]
  - Dry mouth [Unknown]

NARRATIVE: CASE EVENT DATE: 2018
